FAERS Safety Report 12611663 (Version 1)
Quarter: 2016Q3

REPORT INFORMATION
  Report Type: Spontaneous
  Country: FR (occurrence: FR)
  Receive Date: 20160801
  Receipt Date: 20160801
  Transmission Date: 20161109
  Serious: Yes (Hospitalization)
  Sender: FDA-Public Use
  Company Number: FR-NOVOPROD-502772

PATIENT
  Age: 51 Year
  Sex: Male

DRUGS (3)
  1. ESOMEPRAZOL                        /01479301/ [Concomitant]
     Active Substance: ESOMEPRAZOLE
     Dosage: UNK
     Dates: end: 20110326
  2. NOVONORM [Suspect]
     Active Substance: REPAGLINIDE
     Dosage: 1 TABLET IN THE MORNING
     Route: 048
     Dates: start: 20110326, end: 20110326
  3. NOVONORM [Suspect]
     Active Substance: REPAGLINIDE
     Indication: DIABETES MELLITUS
     Dosage: 1 TABLET IN THE EVENING
     Route: 048
     Dates: start: 20110325

REACTIONS (2)
  - Hepatocellular injury [Recovering/Resolving]
  - Cholestasis [Recovering/Resolving]

NARRATIVE: CASE EVENT DATE: 20111126
